FAERS Safety Report 25583516 (Version 1)
Quarter: 2025Q3

REPORT INFORMATION
  Report Type: Spontaneous
  Country: US (occurrence: US)
  Receive Date: 20250721
  Receipt Date: 20250721
  Transmission Date: 20251020
  Serious: No
  Sender: IDORSIA PHARMACEUTICALS
  Company Number: US-IDORSIA-009311-2025-US

PATIENT
  Age: 59 Year
  Sex: Female

DRUGS (1)
  1. QUVIVIQ [Suspect]
     Active Substance: DARIDOREXANT
     Indication: Insomnia
     Dosage: 25 MG, QD
     Route: 065
     Dates: start: 20250129, end: 20250221

REACTIONS (4)
  - Headache [Recovered/Resolved]
  - Migraine [Unknown]
  - Arthritis [Unknown]
  - Neck pain [Unknown]

NARRATIVE: CASE EVENT DATE: 20250201
